FAERS Safety Report 7407657-1 (Version None)
Quarter: 2011Q2

REPORT INFORMATION
  Report Type: 
  Country: None (occurrence: None)
  Receive Date: 20110405
  Receipt Date: 20110325
  Transmission Date: 20111010
  Serious: Yes (Other)
  Sender: FDA-Public Use
  Company Number: 2011MA003100

PATIENT
  Age: 43 Year
  Sex: Male

DRUGS (3)
  1. BENDROFLUMETHIAZIDE [Concomitant]
  2. AMLODIPINE [Concomitant]
  3. RAMIPRIL [Suspect]
     Dates: start: 20101124

REACTIONS (2)
  - GLOMERULAR FILTRATION RATE DECREASED [None]
  - ALANINE AMINOTRANSFERASE INCREASED [None]
